FAERS Safety Report 17016186 (Version 3)
Quarter: 2019Q4

REPORT INFORMATION
  Report Type: Spontaneous
  Country: US (occurrence: US)
  Receive Date: 20191111
  Receipt Date: 20191126
  Transmission Date: 20200122
  Serious: No
  Sender: FDA-Public Use
  Company Number: US-PFIZER INC-2019466994

PATIENT
  Age: 69 Year
  Sex: Male

DRUGS (2)
  1. SUTENT [Suspect]
     Active Substance: SUNITINIB MALATE
     Indication: RENAL CANCER
  2. SUTENT [Suspect]
     Active Substance: SUNITINIB MALATE
     Indication: HODGKIN^S DISEASE
     Dosage: 50 MG, CYCLIC (1 CAP BY MOUTH ONCE DAILY FOR 2 WEEKS THEN 1 WEEK OFF)
     Route: 048

REACTIONS (1)
  - Pollakiuria [Unknown]
